FAERS Safety Report 21312276 (Version 2)
Quarter: 2024Q3

REPORT INFORMATION
  Report Type: Spontaneous
  Country: US (occurrence: None)
  Receive Date: 20220909
  Receipt Date: 20240906
  Transmission Date: 20241016
  Serious: No
  Sender: DOMPE FARMACEUTICI
  Company Number: US-ARIS GLOBAL-202205-0910

PATIENT
  Age: 73 Year
  Sex: Female
  Weight: 44.45 kg

DRUGS (24)
  1. OXERVATE [Suspect]
     Active Substance: CENEGERMIN-BKBJ
     Indication: Neurotrophic keratopathy
     Route: 047
     Dates: start: 20220421, end: 20220615
  2. OXERVATE [Suspect]
     Active Substance: CENEGERMIN-BKBJ
     Route: 047
     Dates: start: 20220801, end: 20220921
  3. OXERVATE [Suspect]
     Active Substance: CENEGERMIN-BKBJ
     Route: 047
     Dates: start: 20221215
  4. OXERVATE [Suspect]
     Active Substance: CENEGERMIN-BKBJ
     Route: 047
     Dates: start: 20231211
  5. OXERVATE [Suspect]
     Active Substance: CENEGERMIN-BKBJ
     Dates: start: 20240226
  6. OXERVATE [Suspect]
     Active Substance: CENEGERMIN-BKBJ
  7. OXERVATE [Suspect]
     Active Substance: CENEGERMIN-BKBJ
  8. OXERVATE [Suspect]
     Active Substance: CENEGERMIN-BKBJ
  9. OXERVATE [Suspect]
     Active Substance: CENEGERMIN-BKBJ
  10. OXERVATE [Suspect]
     Active Substance: CENEGERMIN-BKBJ
  11. OXERVATE [Suspect]
     Active Substance: CENEGERMIN-BKBJ
  12. OXERVATE [Suspect]
     Active Substance: CENEGERMIN-BKBJ
     Route: 047
  13. TYLENOL [Concomitant]
     Active Substance: ACETAMINOPHEN
  14. CALCIUM [Concomitant]
     Active Substance: CALCIUM
     Dosage: 500 (1250)
  15. FISH OIL [Concomitant]
     Active Substance: FISH OIL
     Dosage: 100-160 MG
  16. THIAMINE HYDROCHLORIDE [Concomitant]
     Active Substance: THIAMINE HYDROCHLORIDE
  17. VITAMIN D-400 [Concomitant]
  18. REFRESH OPTIVE MEGA-3 [Concomitant]
     Active Substance: CARBOXYMETHYLCELLULOSE SODIUM\GLYCERIN\POLYSORBATE 80
  19. REFRESH TEARS [Concomitant]
     Active Substance: CARBOXYMETHYLCELLULOSE SODIUM
  20. TIMOLOL MALEATE [Concomitant]
     Active Substance: TIMOLOL MALEATE
  21. TRAVOPROST [Concomitant]
     Active Substance: TRAVOPROST
  22. COSOPT [Concomitant]
     Active Substance: DORZOLAMIDE HYDROCHLORIDE\TIMOLOL MALEATE
     Dosage: 22.3-6.8/1
  23. TIMOLOL-DORZOLAMIDE [Concomitant]
     Dosage: 2 %-0.5 %
  24. RESTASIS [Concomitant]
     Active Substance: CYCLOSPORINE
     Dosage: DROPERETTE

REACTIONS (9)
  - Eye pain [Recovering/Resolving]
  - Eyelids pruritus [Unknown]
  - Lacrimation increased [Unknown]
  - Eye discharge [Unknown]
  - Periorbital pain [Recovering/Resolving]
  - Therapy partial responder [Unknown]
  - Eye infection [Unknown]
  - Eye swelling [Unknown]
  - Vision blurred [Unknown]

NARRATIVE: CASE EVENT DATE: 20240401
